FAERS Safety Report 8795998 (Version 1)
Quarter: 2012Q4

REPORT INFORMATION
  Report Type: 
  Country: US (occurrence: US)
  Receive Date: 20120919
  Receipt Date: 20120919
  Transmission Date: 20130627
  Serious: No
  Sender: FDA-Public Use
  Company Number: US-PFIZER INC-2012230933

PATIENT
  Sex: Female
  Weight: 87.53 kg

DRUGS (2)
  1. CHANTIX [Suspect]
     Indication: SMOKING CESSATION THERAPY
     Dosage: UNK
     Dates: start: 200710, end: 2008
  2. AZOR [Concomitant]
     Indication: HYPERTENSION
     Dosage: 45 mg, daily

REACTIONS (2)
  - Haemoglobin decreased [Unknown]
  - Depression [Unknown]
